FAERS Safety Report 10794101 (Version 3)
Quarter: 2015Q1

REPORT INFORMATION
  Report Type: Report from Study
  Country: US (occurrence: US)
  Receive Date: 20150213
  Receipt Date: 20150331
  Transmission Date: 20150721
  Serious: Yes (Death, Hospitalization)
  Sender: FDA-Public Use
  Company Number: US-ACTELION-A-NJ2015-112483

PATIENT
  Age: 49 Year
  Sex: Female

DRUGS (4)
  1. METOLAZONE. [Concomitant]
     Active Substance: METOLAZONE
  2. REVATIO [Concomitant]
     Active Substance: SILDENAFIL CITRATE
  3. TORSEMIDE. [Concomitant]
     Active Substance: TORSEMIDE
  4. VELETRI [Suspect]
     Active Substance: EPOPROSTENOL
     Indication: PULMONARY ARTERIAL HYPERTENSION
     Dosage: 20 NG/KG, PER MIN
     Route: 042
     Dates: start: 20140821, end: 20150124

REACTIONS (9)
  - Pulmonary arterial hypertension [Fatal]
  - Cardiac failure congestive [Fatal]
  - Cardiac failure acute [Unknown]
  - Hypotension [Unknown]
  - Diastolic dysfunction [Fatal]
  - Renal ischaemia [Unknown]
  - Pulmonary arterial wedge pressure increased [Fatal]
  - Renal impairment [Unknown]
  - Fluid overload [Unknown]
